FAERS Safety Report 20840403 (Version 1)
Quarter: 2022Q2

REPORT INFORMATION
  Report Type: Spontaneous
  Country: None (occurrence: FR)
  Receive Date: 20220517
  Receipt Date: 20220517
  Transmission Date: 20220721
  Serious: Yes (Other)
  Sender: FDA-Public Use
  Company Number: FR-AFSSAPS-LL20221552

PATIENT
  Age: 73 Year
  Sex: Female

DRUGS (4)
  1. OXYGEN [Suspect]
     Active Substance: OXYGEN
     Indication: Chronic kidney disease
     Route: 045
     Dates: start: 20211224, end: 20211225
  2. potassium chlorure (POTASSIUM CHLORIDE) [Concomitant]
  3. PHOSPHORUS [Concomitant]
     Active Substance: PHOSPHORUS
  4. IRON [Concomitant]
     Active Substance: IRON

REACTIONS (2)
  - Nasal crusting [Not Recovered/Not Resolved]
  - Nasal septum perforation [Not Recovered/Not Resolved]

NARRATIVE: CASE EVENT DATE: 20220101
